FAERS Safety Report 18906841 (Version 9)
Quarter: 2021Q3

REPORT INFORMATION
  Report Type: Report from Study
  Country: US (occurrence: US)
  Receive Date: 20210217
  Receipt Date: 20210705
  Transmission Date: 20211014
  Serious: No
  Sender: FDA-Public Use
  Company Number: US-B.I. PHARMACEUTICALS,INC./RIDGEFIELD-2021-BI-078424

PATIENT
  Age: 67 Year

DRUGS (2)
  1. OFEV [Suspect]
     Active Substance: NINTEDANIB
     Route: 048
     Dates: start: 20210415
  2. OFEV [Suspect]
     Active Substance: NINTEDANIB
     Indication: IDIOPATHIC PULMONARY FIBROSIS
     Dosage: 150MG DAILY
     Route: 048
     Dates: start: 20210125, end: 20210217

REACTIONS (42)
  - Diarrhoea [Recovering/Resolving]
  - Depression [Not Recovered/Not Resolved]
  - Asthenia [Unknown]
  - Vomiting [Recovering/Resolving]
  - Diarrhoea [Not Recovered/Not Resolved]
  - Nasal congestion [Not Recovered/Not Resolved]
  - Vomiting [Unknown]
  - Vomiting [Unknown]
  - Pain [Unknown]
  - Hepatic enzyme increased [Recovering/Resolving]
  - Constipation [Recovered/Resolved]
  - Weight decreased [Unknown]
  - Nausea [Recovering/Resolving]
  - Dysgeusia [Unknown]
  - Gastrooesophageal reflux disease [Unknown]
  - Diverticulitis [Unknown]
  - Nausea [Unknown]
  - Enzyme level increased [Unknown]
  - Decreased appetite [Recovering/Resolving]
  - Weight decreased [Not Recovered/Not Resolved]
  - Nausea [Unknown]
  - Diarrhoea [Unknown]
  - Respiratory tract infection [Unknown]
  - Hepatic enzyme increased [Unknown]
  - Fatigue [Unknown]
  - Headache [Unknown]
  - Chest discomfort [Unknown]
  - Dysgeusia [Recovering/Resolving]
  - Vomiting [Not Recovered/Not Resolved]
  - Gastric infection [Recovering/Resolving]
  - Diverticulitis [Not Recovered/Not Resolved]
  - Vomiting [Unknown]
  - Fatigue [Not Recovered/Not Resolved]
  - Illness [Unknown]
  - Abdominal pain upper [Unknown]
  - Depressed mood [Recovering/Resolving]
  - Decreased appetite [Unknown]
  - Asthenia [Recovering/Resolving]
  - Nausea [Not Recovered/Not Resolved]
  - Headache [Unknown]
  - Weight decreased [Unknown]
  - Decreased appetite [Unknown]

NARRATIVE: CASE EVENT DATE: 20210122
